FAERS Safety Report 4411426-4 (Version None)
Quarter: 2004Q3

REPORT INFORMATION
  Report Type: 
  Country: None (occurrence: None)
  Receive Date: 20040727
  Receipt Date: 20040713
  Transmission Date: 20050211
  Serious: Yes (Life-Threatening, Hospitalization)
  Sender: FDA-Public Use
  Company Number: 6009527F

PATIENT
  Age: 77 Year
  Sex: Female

DRUGS (5)
  1. NIASPAN [Suspect]
     Indication: DYSLIPIDAEMIA
     Dosage: 375 MG QD PO
     Route: 048
     Dates: start: 20040701, end: 20040701
  2. HYDROCHLOROTHIAZIDE IRBESARTAN [Concomitant]
  3. LEVOTHYROXINE SODIUM [Concomitant]
  4. DOXEPIN HCL [Concomitant]
  5. DIBENZEPIN HYDROCHLORIDE [Concomitant]

REACTIONS (2)
  - ANAPHYLACTOID SHOCK [None]
  - CIRCULATORY COLLAPSE [None]
